FAERS Safety Report 21485389 (Version 1)
Quarter: 2022Q4

REPORT INFORMATION
  Report Type: Spontaneous
  Country: US (occurrence: US)
  Receive Date: 20221020
  Receipt Date: 20221020
  Transmission Date: 20230113
  Serious: Yes (Hospitalization, Other)
  Sender: FDA-Public Use
  Company Number: US-ADVANZ PHARMA-202210006669

PATIENT

DRUGS (2)
  1. DIGOXIN [Suspect]
     Active Substance: DIGOXIN
     Indication: Atrial fibrillation
     Dosage: 0.125 MG, QD
  2. DIGOXIN [Suspect]
     Active Substance: DIGOXIN
     Dosage: 0.0625 MG, QD

REACTIONS (5)
  - Toxicity to various agents [Recovering/Resolving]
  - Hypotension [Recovering/Resolving]
  - Mental status changes [Recovering/Resolving]
  - Confusional state [Recovering/Resolving]
  - Bradycardia [Recovered/Resolved]
